FAERS Safety Report 22969480 (Version 5)
Quarter: 2023Q4

REPORT INFORMATION
  Report Type: Report from Study
  Country: GB (occurrence: GB)
  Receive Date: 20230922
  Receipt Date: 20231031
  Transmission Date: 20240109
  Serious: No
  Sender: FDA-Public Use
  Company Number: GB-JNJFOC-20230907885

PATIENT
  Sex: Female

DRUGS (4)
  1. STELARA [Suspect]
     Active Substance: USTEKINUMAB
     Indication: Psoriatic arthropathy
     Dosage: STRENGTH: 45.00 MG / 0.50 ML
     Route: 058
     Dates: start: 2019
  2. STELARA [Suspect]
     Active Substance: USTEKINUMAB
  3. METHOTREXATE [Concomitant]
     Active Substance: METHOTREXATE
  4. OMEPRAZOLE [Concomitant]
     Active Substance: OMEPRAZOLE

REACTIONS (4)
  - Product dose omission issue [Unknown]
  - Device defective [Unknown]
  - Arthralgia [Not Recovered/Not Resolved]
  - Syringe issue [Unknown]

NARRATIVE: CASE EVENT DATE: 20230902
